FAERS Safety Report 20702227 (Version 1)
Quarter: 2022Q2

REPORT INFORMATION
  Report Type: Spontaneous
  Country: US (occurrence: None)
  Receive Date: 20220411
  Receipt Date: 20220411
  Transmission Date: 20220721
  Serious: No
  Sender: FDA-Public Use
  Company Number: None

PATIENT
  Age: 62 Year
  Sex: Female
  Weight: 99 kg

DRUGS (9)
  1. DULOXETINE [Suspect]
     Active Substance: DULOXETINE
     Indication: Depression
     Dosage: OTHER QUANTITY : 1 CAPSULE(S);?FREQUENCY : DAILY;?
     Route: 048
     Dates: end: 20220228
  2. DULOXETINE [Suspect]
     Active Substance: DULOXETINE
     Indication: Fibromyalgia
  3. BUMETANIDE [Concomitant]
     Active Substance: BUMETANIDE
  4. LEVOTHYROXINE [Concomitant]
     Active Substance: LEVOTHYROXINE
  5. LISINOPRIL [Concomitant]
  6. DULOXETINE [Concomitant]
     Active Substance: DULOXETINE
  7. MONTELUKAST [Concomitant]
     Active Substance: MONTELUKAST SODIUM
  8. INSULIN NOS [Concomitant]
     Active Substance: INSULIN NOS
  9. VITAMINS [Concomitant]
     Active Substance: VITAMINS

REACTIONS (8)
  - Product substitution issue [None]
  - Dizziness [None]
  - Nystagmus [None]
  - Nausea [None]
  - Therapeutic product effect decreased [None]
  - Weight increased [None]
  - Blood pressure increased [None]
  - Fluid retention [None]

NARRATIVE: CASE EVENT DATE: 20220105
